FAERS Safety Report 6594514-6 (Version None)
Quarter: 2010Q1

REPORT INFORMATION
  Report Type: 
  Country: None (occurrence: None)
  Receive Date: 20100222
  Receipt Date: 20100210
  Transmission Date: 20100710
  Serious: Yes (Hospitalization)
  Sender: FDA-Public Use
  Company Number: JP-PFIZER INC-2010015293

PATIENT
  Age: 47 Year
  Sex: Female
  Weight: 55.4 kg

DRUGS (10)
  1. AZITHROMYCIN [Suspect]
     Indication: PNEUMONIA
     Dosage: 500 MG, ONCE DAILY
     Route: 042
     Dates: start: 20100126, end: 20100129
  2. AZITHROMYCIN [Suspect]
     Dosage: 500 MG ONCE DAILY
     Route: 048
     Dates: start: 20100129, end: 20100202
  3. MEDICON [Concomitant]
     Dosage: UNK
     Route: 048
     Dates: start: 20100126
  4. BROCIN [Concomitant]
     Dosage: UNK
     Route: 048
     Dates: start: 20100126
  5. APRICOT KERNEL WATER [Concomitant]
     Dosage: UNK
     Route: 048
     Dates: start: 20100126
  6. SENEGA SYRUP [Concomitant]
     Dosage: UNK
     Route: 048
     Dates: start: 20100126
  7. FAMOTIDINE [Concomitant]
     Dosage: EVERY EVENING
     Route: 048
     Dates: start: 20100131
  8. KLARICID [Concomitant]
     Indication: PNEUMONIA
     Dates: start: 20100118, end: 20100122
  9. GARENOXACIN MESILATE [Concomitant]
     Indication: PNEUMONIA
     Dates: start: 20100123, end: 20100126
  10. CALONAL [Concomitant]
     Indication: PYREXIA
     Dates: start: 20100118, end: 20100126

REACTIONS (1)
  - PNEUMONIA [None]
